FAERS Safety Report 6522569-3 (Version None)
Quarter: 2009Q4

REPORT INFORMATION
  Report Type: 
  Country: None (occurrence: None)
  Receive Date: 20091230
  Receipt Date: 20091218
  Transmission Date: 20100525
  Serious: Yes (Other)
  Sender: FDA-Public Use
  Company Number: CA-AMGEN-KDL380141

PATIENT
  Sex: Male
  Weight: 70.8 kg

DRUGS (1)
  1. ENBREL [Suspect]
     Indication: RHEUMATOID ARTHRITIS
     Dates: start: 20091127, end: 20091214

REACTIONS (3)
  - MUSCLE SPASMS [None]
  - POLYNEUROPATHY [None]
  - RHEUMATOID ARTHRITIS [None]
